FAERS Safety Report 6064497-6 (Version None)
Quarter: 2009Q1

REPORT INFORMATION
  Report Type: 
  Country: None (occurrence: None)
  Receive Date: 20090121
  Receipt Date: 20080228
  Transmission Date: 20090719
  Serious: Yes (Other)
  Sender: FDA-Public Use
  Company Number: HQWYE065706AUG04

PATIENT
  Age: 48 Year
  Sex: Female

DRUGS (6)
  1. PREMPRO [Suspect]
  2. ESTRACE [Suspect]
  3. ESTRATAB [Suspect]
  4. PREMARIN [Suspect]
  5. PREMELLE (CONJUGATED ESTROGENS/MEDROXYPROGESTERONE ACETATE, TABLET, UN [Suspect]
  6. PROVERA [Suspect]

REACTIONS (2)
  - CARDIOVASCULAR DISORDER [None]
  - CEREBROVASCULAR ACCIDENT [None]
